FAERS Safety Report 6100880-8 (Version None)
Quarter: 2009Q1

REPORT INFORMATION
  Report Type: 
  Country: None (occurrence: None)
  Receive Date: 20090226
  Receipt Date: 20090219
  Transmission Date: 20090719
  Serious: Yes (Hospitalization)
  Sender: FDA-Public Use
  Company Number: CHPA2009US04672

PATIENT
  Age: 58 Year
  Sex: Female

DRUGS (3)
  1. ACETAMINOPHEN (PARACETAMOL), DIPHENHYDRAMINE  HYDROCHLORIDE (NCH)(ACET [Suspect]
     Dosage: ORAL
     Route: 048
  2. ESCITALOPRAM [Suspect]
     Dosage: ORAL
     Route: 048
  3. ZOLPIDEM [Suspect]
     Dosage: ORAL
     Route: 048

REACTIONS (4)
  - ANALGESIC DRUG LEVEL INCREASED [None]
  - HEPATOTOXICITY [None]
  - INTERNATIONAL NORMALISED RATIO INCREASED [None]
  - OVERDOSE [None]
